FAERS Safety Report 5429241-1 (Version None)
Quarter: 2007Q3

REPORT INFORMATION
  Report Type: 
  Country: None (occurrence: None)
  Receive Date: 20070827
  Receipt Date: 20070827
  Transmission Date: 20080115
  Serious: Yes (Other)
  Sender: FDA-Public Use
  Company Number: None

PATIENT
  Age: 29 Year
  Sex: Female
  Weight: 62.5964 kg

DRUGS (1)
  1. KENALOG [Suspect]
     Indication: KELOID SCAR
     Dosage: 2 ML ONCE INTRA-ARTIC
     Route: 014
     Dates: start: 20061214, end: 20061214

REACTIONS (21)
  - ALOPECIA [None]
  - AMENORRHOEA [None]
  - ARTHRALGIA [None]
  - BACK PAIN [None]
  - BREAST FEEDING [None]
  - CONTUSION [None]
  - DECREASED ACTIVITY [None]
  - FIBROSIS [None]
  - FRUSTRATION [None]
  - GASTROINTESTINAL HAEMORRHAGE [None]
  - MASS [None]
  - MOOD ALTERED [None]
  - NUCLEAR MAGNETIC RESONANCE IMAGING ABNORMAL [None]
  - PALPITATIONS [None]
  - PERIPHERAL COLDNESS [None]
  - POLYMENORRHOEA [None]
  - SKIN ATROPHY [None]
  - SKIN DISCOLOURATION [None]
  - SKIN DISORDER [None]
  - SKIN EXFOLIATION [None]
  - TENDERNESS [None]
